FAERS Safety Report 18549724 (Version 2)
Quarter: 2025Q3

REPORT INFORMATION
  Report Type: Spontaneous
  Country: JP (occurrence: JP)
  Receive Date: 20201126
  Receipt Date: 20250925
  Transmission Date: 20251020
  Serious: Yes (Other)
  Sender: SUNOVION
  Company Number: JP-SUNOVION-2020DSP014906

PATIENT
  Age: 26 Year
  Sex: Female

DRUGS (3)
  1. LATUDA [Suspect]
     Active Substance: LURASIDONE HYDROCHLORIDE
     Indication: Dissociative disorder
     Dosage: 40 MG, QD
     Route: 048
     Dates: start: 202010
  2. VALPROATE SODIUM [Suspect]
     Active Substance: VALPROATE SODIUM
     Indication: Product used for unknown indication
     Dosage: 800 MG, QD
     Route: 048
  3. LEXAPRO [Concomitant]
     Active Substance: ESCITALOPRAM OXALATE
     Dosage: 20 MG, QD

REACTIONS (5)
  - Seizure [Unknown]
  - Hallucination, auditory [Unknown]
  - Impulsive behaviour [Unknown]
  - Hyperphagia [Unknown]
  - Product use in unapproved indication [Unknown]
